FAERS Safety Report 6155877-9 (Version None)
Quarter: 2009Q2

REPORT INFORMATION
  Report Type: 
  Country: None (occurrence: None)
  Receive Date: 20090415
  Receipt Date: 20090409
  Transmission Date: 20091009
  Serious: Yes (Congenital Anomaly)
  Sender: FDA-Public Use
  Company Number: US-AMGEN-US342342

PATIENT
  Weight: 2.37 kg

DRUGS (11)
  1. ENBREL [Suspect]
     Route: 064
     Dates: start: 20080125, end: 20081019
  2. VITAMIN TAB [Concomitant]
     Route: 064
     Dates: start: 20080125, end: 20081019
  3. PREDNISONE [Concomitant]
     Route: 064
     Dates: start: 20080125, end: 20081019
  4. LUPRON [Concomitant]
     Route: 064
     Dates: start: 20080203, end: 20080203
  5. DEXAMETHASONE TAB [Concomitant]
     Route: 064
     Dates: start: 20080126, end: 20080203
  6. ZITHROMAX [Concomitant]
     Route: 064
     Dates: start: 20080205, end: 20080210
  7. PROGESTERONE [Concomitant]
     Route: 064
     Dates: start: 20080205, end: 20080412
  8. ASPIRIN [Concomitant]
     Route: 064
     Dates: start: 20080126, end: 20080416
  9. KETOCONAZOLE [Concomitant]
     Route: 064
     Dates: start: 20080717, end: 20080731
  10. TUMS [Concomitant]
     Route: 064
     Dates: start: 20080701, end: 20081019
  11. INFLUENZA VACCINE [Concomitant]
     Route: 064
     Dates: start: 20081017, end: 20081017

REACTIONS (3)
  - ATRIAL HYPERTROPHY [None]
  - ATRIAL SEPTAL DEFECT [None]
  - PATENT DUCTUS ARTERIOSUS [None]
